FAERS Safety Report 14837453 (Version 6)
Quarter: 2018Q4

REPORT INFORMATION
  Report Type: Spontaneous
  Country: US (occurrence: US)
  Receive Date: 20180502
  Receipt Date: 20181101
  Transmission Date: 20190204
  Serious: No
  Sender: FDA-Public Use
  Company Number: US-PFIZER INC-2017441030

PATIENT
  Age: 7 Year
  Sex: Female
  Weight: 40 kg

DRUGS (4)
  1. RAPAMUNE [Suspect]
     Active Substance: SIROLIMUS
     Dosage: 3.6 ML, DAILY (FOR 30 DAYS)
     Route: 048
     Dates: start: 20171009
  2. RAPAMUNE [Suspect]
     Active Substance: SIROLIMUS
     Indication: LIVER TRANSPLANT
     Dosage: 3.4 MG, DAILY
     Route: 048
     Dates: start: 20150701
  3. RAPAMUNE [Suspect]
     Active Substance: SIROLIMUS
     Dosage: 3.6 MG, DAILY
     Route: 048
  4. RAPAMUNE [Suspect]
     Active Substance: SIROLIMUS
     Dosage: 4.8 MG, DAILY (TAKE 4-8MLS (4.8MG TOTAL))
     Route: 048

REACTIONS (3)
  - Product use in unapproved indication [Unknown]
  - Product use issue [Unknown]
  - Drug level decreased [Unknown]

NARRATIVE: CASE EVENT DATE: 20150701
